FAERS Safety Report 13896887 (Version 2)
Quarter: 2017Q4

REPORT INFORMATION
  Report Type: Report from Study
  Country: GB (occurrence: GB)
  Receive Date: 20170823
  Receipt Date: 20171017
  Transmission Date: 20180320
  Serious: Yes (Hospitalization, Other)
  Sender: FDA-Public Use
  Company Number: GB-AMGEN-GBRSL2017125822

PATIENT
  Sex: Female

DRUGS (1)
  1. ARANESP [Suspect]
     Active Substance: DARBEPOETIN ALFA
     Indication: PRODUCT USED FOR UNKNOWN INDICATION
     Dosage: 50 MUG, UNK
     Route: 065

REACTIONS (5)
  - Disorientation [Unknown]
  - Blood calcium increased [Unknown]
  - Ill-defined disorder [Unknown]
  - Immobile [Unknown]
  - Ear infection [Unknown]
